FAERS Safety Report 19265025 (Version 1)
Quarter: 2021Q2

REPORT INFORMATION
  Report Type: Spontaneous
  Country: CA (occurrence: CA)
  Receive Date: 20210517
  Receipt Date: 20210517
  Transmission Date: 20210717
  Serious: Yes (Life-Threatening, Hospitalization, Other)
  Sender: FDA-Public Use
  Company Number: CA-009507513-2105CAN002478

PATIENT
  Age: 64 Year
  Sex: Male
  Weight: 56 kg

DRUGS (1)
  1. KEYTRUDA [Suspect]
     Active Substance: PEMBROLIZUMAB
     Indication: LUNG ADENOCARCINOMA STAGE IV
     Dosage: 110 MILLIGRAM, Q3H
     Route: 042

REACTIONS (4)
  - Immune-mediated lung disease [Not Recovered/Not Resolved]
  - Palliative care [Not Recovered/Not Resolved]
  - Dyspnoea exertional [Not Recovered/Not Resolved]
  - Lung infiltration [Not Recovered/Not Resolved]
